FAERS Safety Report 9040509 (Version 2)
Quarter: 2013Q2

REPORT INFORMATION
  Report Type: Spontaneous
  Country: US (occurrence: US)
  Receive Date: 20130129
  Receipt Date: 20130625
  Transmission Date: 20140414
  Serious: Yes (Hospitalization)
  Sender: FDA-Public Use
  Company Number: US-UCBSA-076576

PATIENT
  Age: 44 Year
  Sex: Male

DRUGS (2)
  1. KEPPRA XR [Suspect]
     Indication: CONVULSION
     Dates: start: 201107
  2. NEURONTIN [Concomitant]
     Indication: PAIN IN EXTREMITY
     Dosage: UNKNOWN DOSE

REACTIONS (3)
  - Renal failure [Recovered/Resolved]
  - Convulsion [Recovered/Resolved]
  - Inappropriate schedule of drug administration [Unknown]
